FAERS Safety Report 4532621-X (Version None)
Quarter: 2004Q4

REPORT INFORMATION
  Report Type: 
  Country: None (occurrence: None)
  Receive Date: 20041220
  Receipt Date: 20041220
  Transmission Date: 20050328
  Serious: Yes (Other)
  Sender: FDA-Public Use
  Company Number: None

PATIENT
  Age: 72 Year
  Sex: Male
  Weight: 69.8539 kg

DRUGS (2)
  1. NEUMEGA [Suspect]
     Indication: PANCREATIC CARCINOMA
     Dosage: ONLY ONE DOSE , SC
     Route: 058
     Dates: start: 20041203
  2. NEUMEGA [Suspect]
     Indication: THROMBOCYTOPENIA
     Dosage: ONLY ONE DOSE , SC
     Route: 058
     Dates: start: 20041203

REACTIONS (1)
  - WHEEZING [None]
